FAERS Safety Report 23406648 (Version 2)
Quarter: 2024Q1

REPORT INFORMATION
  Report Type: Report from Study
  Country: US (occurrence: None)
  Receive Date: 20240116
  Receipt Date: 20240123
  Transmission Date: 20240410
  Serious: Yes (Other)
  Sender: FDA-Public Use
  Company Number: 2024A006577

PATIENT
  Age: 86 Year
  Weight: 76.7 kg

DRUGS (4)
  1. TEZSPIRE [Suspect]
     Active Substance: TEZEPELUMAB-EKKO
     Indication: Asthma
     Route: 058
  2. PULMICORT TURBUHALER [Suspect]
     Active Substance: BUDESONIDE
     Indication: Chronic obstructive pulmonary disease
     Dosage: 0.5 MG / 2 ML
     Route: 055
  3. FARXIGA [Suspect]
     Active Substance: DAPAGLIFLOZIN PROPANEDIOL
     Indication: Type 2 diabetes mellitus
     Route: 048
  4. OMEPRAZOLE MAGNESIUM [Suspect]
     Active Substance: OMEPRAZOLE MAGNESIUM
     Indication: Diabetes mellitus
     Route: 048

REACTIONS (28)
  - Atrial fibrillation [Unknown]
  - Cardiomegaly [Unknown]
  - Cardiac failure congestive [Unknown]
  - Pleural effusion [Unknown]
  - Lung infiltration [Unknown]
  - Mean cell haemoglobin increased [Unknown]
  - Platelet count decreased [Unknown]
  - Mean cell volume abnormal [Unknown]
  - Monocyte count abnormal [Unknown]
  - Glomerular filtration rate abnormal [Unknown]
  - Blood creatinine increased [Unknown]
  - Blood urea increased [Unknown]
  - Cough [Unknown]
  - Hyperlipidaemia [Unknown]
  - Contraceptive diaphragm [Unknown]
  - Arthralgia [Unknown]
  - Biopsy lung [Unknown]
  - Abdominal discomfort [Unknown]
  - Colorectal adenoma [Unknown]
  - Blood sodium [Unknown]
  - Blood glucose [Unknown]
  - Lipase [Unknown]
  - Red blood cell abnormality [Unknown]
  - White blood cell count [Unknown]
  - Mean cell haemoglobin concentration [Unknown]
  - Red cell distribution width increased [Unknown]
  - Asthenia [Unknown]
  - Dizziness [Unknown]
